FAERS Safety Report 14260424 (Version 1)
Quarter: 2017Q4

REPORT INFORMATION
  Report Type: Spontaneous
  Country: IT (occurrence: IT)
  Receive Date: 20171207
  Receipt Date: 20171207
  Transmission Date: 20180321
  Serious: Yes (Hospitalization, Other)
  Sender: FDA-Public Use
  Company Number: IT-IMPAX LABORATORIES, INC-2017-IPXL-03454

PATIENT
  Age: 14 Month
  Sex: Female

DRUGS (3)
  1. PROPRANOLOL HYDROCHLORIDE IR [Suspect]
     Active Substance: PROPRANOLOL HYDROCHLORIDE
     Indication: PRODUCT USE IN UNAPPROVED INDICATION
     Dosage: INCREASED TO 2 MG/KG/DIE (IN 2 DAILY DOSES)
     Route: 065
  2. PROPRANOLOL HYDROCHLORIDE IR [Suspect]
     Active Substance: PROPRANOLOL HYDROCHLORIDE
     Dosage: 1 MG/ML AS A SOLUTION
     Route: 065
  3. PROPRANOLOL HYDROCHLORIDE IR [Suspect]
     Active Substance: PROPRANOLOL HYDROCHLORIDE
     Indication: INFANTILE HAEMANGIOMA
     Dosage: 0.5 MG/KG/DIE (IN 2 DAILY DOSES)
     Route: 065

REACTIONS (12)
  - Product use issue [Unknown]
  - Product use in unapproved indication [Unknown]
  - Drug administered to patient of inappropriate age [Unknown]
  - Brain injury [Recovered/Resolved with Sequelae]
  - Status epilepticus [Recovered/Resolved]
  - Epilepsy [Not Recovered/Not Resolved]
  - Upper respiratory tract infection [Unknown]
  - Human rhinovirus test positive [Unknown]
  - Paralysis [Not Recovered/Not Resolved]
  - Cognitive disorder [Not Recovered/Not Resolved]
  - Cardiac arrest [Recovered/Resolved with Sequelae]
  - Adenovirus test positive [Unknown]
